FAERS Safety Report 17826404 (Version 1)
Quarter: 2020Q2

REPORT INFORMATION
  Report Type: Spontaneous
  Country: US (occurrence: US)
  Receive Date: 20200526
  Receipt Date: 20200526
  Transmission Date: 20200714
  Serious: Yes (Other)
  Sender: FDA-Public Use
  Company Number: US-NAPPMUNDI-USA-2020-0152879

PATIENT

DRUGS (1)
  1. OXYCODONE HYDROCHLORIDE (SIMILAR TO NDA 22-272) [Suspect]
     Active Substance: OXYCODONE HYDROCHLORIDE
     Indication: PRODUCT USED FOR UNKNOWN INDICATION
     Dosage: UNKNOWN
     Route: 048

REACTIONS (9)
  - Anxiety [Unknown]
  - Drug dependence [Unknown]
  - Mood swings [Unknown]
  - Liver injury [Unknown]
  - Diabetes mellitus [Unknown]
  - Drug withdrawal syndrome [Unknown]
  - Neoplasm malignant [Unknown]
  - Night sweats [Unknown]
  - Marital problem [Unknown]

NARRATIVE: CASE EVENT DATE: 201209
